FAERS Safety Report 10385978 (Version 2)
Quarter: 2015Q3

REPORT INFORMATION
  Report Type: Spontaneous
  Country: US (occurrence: US)
  Receive Date: 20140814
  Receipt Date: 20150817
  Transmission Date: 20151125
  Serious: No
  Sender: FDA-Public Use
  Company Number: US-GILEAD-2014-0111970

PATIENT
  Age: 69 Year
  Sex: Female

DRUGS (4)
  1. LETAIRIS [Suspect]
     Active Substance: AMBRISENTAN
     Indication: SARCOIDOSIS
     Dosage: 10 MG, QD
     Route: 065
     Dates: start: 20140523
  2. TYVASO [Concomitant]
     Active Substance: TREPROSTINIL
  3. COUMADIN [Concomitant]
     Active Substance: WARFARIN SODIUM
  4. REVATIO [Concomitant]
     Active Substance: SILDENAFIL CITRATE

REACTIONS (1)
  - Colonoscopy [Unknown]
